FAERS Safety Report 6746030-6 (Version None)
Quarter: 2010Q2

REPORT INFORMATION
  Report Type: 
  Country: None (occurrence: None)
  Receive Date: 20100528
  Receipt Date: 20100517
  Transmission Date: 20101027
  Serious: Yes (Hospitalization)
  Sender: FDA-Public Use
  Company Number: US-ELI_LILLY_AND_COMPANY-US201004004390

PATIENT
  Sex: Female

DRUGS (3)
  1. FORTEO [Suspect]
     Indication: OSTEOPOROSIS
     Dosage: 20 UG, DAILY (1/D)
     Dates: start: 20090901, end: 20100323
  2. OMEPRAZOLE [Concomitant]
     Dosage: 20 MG, UNKNOWN
  3. LORAZEPAM [Concomitant]
     Dosage: 0.5 MG, UNKNOWN

REACTIONS (2)
  - ASTHENIA [None]
  - TREMOR [None]
